FAERS Safety Report 15734112 (Version 1)
Quarter: 2018Q4

REPORT INFORMATION
  Report Type: Spontaneous
  Country: FR (occurrence: FR)
  Receive Date: 20181218
  Receipt Date: 20181218
  Transmission Date: 20190205
  Serious: Yes (Other)
  Sender: FDA-Public Use
  Company Number: FR-AUROBINDO-AUR-APL-2018-059904

PATIENT
  Age: 40 Year
  Sex: Male

DRUGS (2)
  1. AMOXICILLIN CLAVULANIC ACID [Concomitant]
     Active Substance: AMOXICILLIN\CLAVULANIC ACID
     Indication: HYPOGAMMAGLOBULINAEMIA
     Dosage: 1200 MILLIGRAM, DAILY (12 G/1,200 MG/D)
     Route: 065
     Dates: start: 2017
  2. LEVOFLOXACIN. [Suspect]
     Active Substance: LEVOFLOXACIN
     Indication: HYPOGAMMAGLOBULINAEMIA
     Dosage: 500 MILLIGRAM, TWO TIMES A DAY
     Route: 065
     Dates: start: 2017, end: 2017

REACTIONS (1)
  - Tendon disorder [Unknown]

NARRATIVE: CASE EVENT DATE: 2017
